FAERS Safety Report 25681732 (Version 2)
Quarter: 2025Q3

REPORT INFORMATION
  Report Type: Report from Study
  Country: US (occurrence: US)
  Receive Date: 20250814
  Receipt Date: 20250827
  Transmission Date: 20251020
  Serious: Yes (Hospitalization, Other)
  Sender: UCB
  Company Number: US-UCBSA-2025034381

PATIENT
  Age: 24 Year
  Sex: Female
  Weight: 43.1 kg

DRUGS (18)
  1. FINTEPLA [Suspect]
     Active Substance: FENFLURAMINE
     Indication: Lennox-Gastaut syndrome
     Dosage: 6 MILLILITER, 2X/DAY (BID)
     Route: 048
     Dates: start: 20230930
  2. FINTEPLA [Suspect]
     Active Substance: FENFLURAMINE
     Dosage: 6 MILLILITER, 2X/DAY (BID)
     Dates: start: 20250514
  3. XCOPRI [Concomitant]
     Active Substance: CENOBAMATE
     Indication: Seizure
  4. XCOPRI [Concomitant]
     Active Substance: CENOBAMATE
  5. XCOPRI [Concomitant]
     Active Substance: CENOBAMATE
     Dosage: 250 MILLIGRAM, ONCE DAILY (QD)
  6. ONFI [Concomitant]
     Active Substance: CLOBAZAM
     Indication: Seizure
     Dates: start: 20250328
  7. ONFI [Concomitant]
     Active Substance: CLOBAZAM
     Dates: start: 20250427
  8. ONFI [Concomitant]
     Active Substance: CLOBAZAM
     Dosage: 15 MILLILITER, 2X/DAY (BID)
  9. VIMPAT [Concomitant]
     Active Substance: LACOSAMIDE
     Indication: Product used for unknown indication
     Dosage: 50 MILLIGRAM, 2X/DAY (BID)
  10. CHOLECALCIFEROL [Concomitant]
     Active Substance: CHOLECALCIFEROL
     Indication: Product used for unknown indication
  11. DIASTAT ACUDIAL [Concomitant]
     Active Substance: DIAZEPAM
     Indication: Product used for unknown indication
     Route: 054
     Dates: start: 20250217
  12. DIASTAT ACUDIAL [Concomitant]
     Active Substance: DIAZEPAM
     Indication: Seizure
  13. PEPCID [Concomitant]
     Active Substance: FAMOTIDINE
     Indication: Product used for unknown indication
  14. PEPCID [Concomitant]
     Active Substance: FAMOTIDINE
     Route: 048
  15. THERA M PLUS [Concomitant]
     Indication: Product used for unknown indication
  16. NAYZILAM [Concomitant]
     Active Substance: MIDAZOLAM
     Indication: Product used for unknown indication
  17. VITAMINS [Concomitant]
     Active Substance: VITAMINS
     Indication: Product used for unknown indication
     Route: 048
  18. ZOFRAN [Concomitant]
     Active Substance: ONDANSETRON HYDROCHLORIDE
     Indication: Product used for unknown indication
     Route: 048

REACTIONS (17)
  - Road traffic accident [Recovered/Resolved]
  - Seizure [Unknown]
  - Pneumonia [Recovered/Resolved]
  - Respiratory failure [Unknown]
  - Focal dyscognitive seizures [Unknown]
  - Generalised tonic-clonic seizure [Unknown]
  - Status epilepticus [Unknown]
  - Lactic acidosis [Recovered/Resolved]
  - Pneumonia aspiration [Unknown]
  - Septic shock [Unknown]
  - Acute myocardial infarction [Unknown]
  - Pneumonitis chemical [Unknown]
  - Right ventricular enlargement [Recovered/Resolved]
  - Dyspnoea [Unknown]
  - Mycoplasma infection [Unknown]
  - Hypertransaminasaemia [Unknown]
  - Normocytic anaemia [Unknown]

NARRATIVE: CASE EVENT DATE: 20250501
